FAERS Safety Report 6889530-0 (Version None)
Quarter: 2010Q3

REPORT INFORMATION
  Report Type: 
  Country: None (occurrence: None)
  Receive Date: 20100730
  Receipt Date: 20080308
  Transmission Date: 20110219
  Serious: No
  Sender: FDA-Public Use
  Company Number: US-PFIZER INC-2008006912

PATIENT
  Sex: Male
  Weight: 97.52 kg

DRUGS (4)
  1. LIPITOR [Suspect]
     Indication: LOW DENSITY LIPOPROTEIN INCREASED
     Dates: start: 20070801
  2. VITAMINS [Concomitant]
  3. UBIDECARENONE [Concomitant]
  4. FISH OIL [Concomitant]

REACTIONS (8)
  - ARTHRALGIA [None]
  - CHEST DISCOMFORT [None]
  - CHONDROCALCINOSIS PYROPHOSPHATE [None]
  - ERYTHEMA [None]
  - HYPERSENSITIVITY [None]
  - MUSCLE TIGHTNESS [None]
  - MYALGIA [None]
  - NASOPHARYNGITIS [None]
